FAERS Safety Report 23341938 (Version 1)
Quarter: 2023Q4

REPORT INFORMATION
  Report Type: Report from Study
  Country: BR (occurrence: BR)
  Receive Date: 20231227
  Receipt Date: 20231227
  Transmission Date: 20240110
  Serious: Yes (Hospitalization)
  Sender: FDA-Public Use
  Company Number: BR-JNJFOC-20231252029

PATIENT
  Age: 40 Year
  Sex: Male
  Weight: 75 kg

DRUGS (2)
  1. INFLIXIMAB [Suspect]
     Active Substance: INFLIXIMAB
     Indication: Crohn^s disease
     Route: 041
     Dates: start: 20110904
  2. INFLIXIMAB [Suspect]
     Active Substance: INFLIXIMAB
     Indication: Crohn^s disease
     Route: 041
     Dates: start: 20110904

REACTIONS (3)
  - Pneumonia [Recovering/Resolving]
  - Influenza [Recovering/Resolving]
  - Decreased immune responsiveness [Recovering/Resolving]

NARRATIVE: CASE EVENT DATE: 20230101
